FAERS Safety Report 18985268 (Version 2)
Quarter: 2021Q1

REPORT INFORMATION
  Report Type: Spontaneous
  Country: US (occurrence: US)
  Receive Date: 20210309
  Receipt Date: 20210315
  Transmission Date: 20210420
  Serious: Yes (Hospitalization, Other)
  Sender: FDA-Public Use
  Company Number: US-JNJFOC-20210304834

PATIENT

DRUGS (2)
  1. BALVERSA [Suspect]
     Active Substance: ERDAFITINIB
     Indication: PRODUCT USED FOR UNKNOWN INDICATION
     Route: 048
  2. BALVERSA [Suspect]
     Active Substance: ERDAFITINIB
     Route: 048

REACTIONS (5)
  - Hepatic enzyme [Not Recovered/Not Resolved]
  - Chorioretinopathy [Recovering/Resolving]
  - Blood creatinine increased [Recovered/Resolved]
  - Hyperphosphataemia [Recovering/Resolving]
  - Blood magnesium increased [Unknown]

NARRATIVE: CASE EVENT DATE: 20210301
